FAERS Safety Report 6491277-X (Version None)
Quarter: 2009Q4

REPORT INFORMATION
  Report Type: 
  Country: None (occurrence: None)
  Receive Date: 20091211
  Receipt Date: 20091204
  Transmission Date: 20100525
  Serious: Yes (Hospitalization)
  Sender: FDA-Public Use
  Company Number: PHHO2009US15027

PATIENT
  Sex: Female
  Weight: 107.7 kg

DRUGS (19)
  1. CERTICAN [Suspect]
     Indication: LIVER TRANSPLANT
     Dosage: 6.0MG/DAY
     Route: 048
     Dates: start: 20090910
  2. TACROLIMUS COMP-TAC+ [Suspect]
     Indication: LIVER TRANSPLANT
     Dosage: 6.0MG/DAY
     Route: 048
     Dates: start: 20090812
  3. PREDNISONE [Concomitant]
     Indication: LIVER TRANSPLANT
  4. BACTRIM DS [Concomitant]
  5. ACYCLOVIR [Concomitant]
  6. LIMBREL [Concomitant]
  7. MAGNESIUM OXIDE [Concomitant]
  8. CALCIUM [Concomitant]
  9. VITAMIN D [Concomitant]
  10. AMLODIPINE [Concomitant]
  11. ACTONEL [Concomitant]
  12. URSO 250 [Concomitant]
  13. LASIX [Concomitant]
  14. NPH INSULIN [Concomitant]
  15. LANTUS [Concomitant]
  16. HUMALOG [Concomitant]
  17. REGULAR INSULIN [Concomitant]
  18. ALBUTEROL [Concomitant]
  19. PROTONIX [Concomitant]

REACTIONS (3)
  - BURNING SENSATION [None]
  - HERPES ZOSTER [None]
  - PAIN [None]
